FAERS Safety Report 4614197-1 (Version None)
Quarter: 2005Q1

REPORT INFORMATION
  Report Type: 
  Country: None (occurrence: None)
  Receive Date: 20050316
  Receipt Date: 20050301
  Transmission Date: 20050727
  Serious: Yes (Death)
  Sender: FDA-Public Use
  Company Number: 2005-BP-03158BP

PATIENT
  Age: 1 Day
  Sex: Male
  Weight: 1.25 kg

DRUGS (1)
  1. VIRAMUNE [Suspect]
     Indication: PROPHYLAXIS AGAINST HIV INFECTION
     Dosage: 200 MG (NR), IU
     Route: 015
     Dates: start: 20020428, end: 20020428

REACTIONS (5)
  - APGAR SCORE LOW [None]
  - DIARRHOEA NEONATAL [None]
  - DRUG EXPOSURE DURING PREGNANCY [None]
  - NEONATAL APNOEIC ATTACK [None]
  - PREMATURE BABY [None]
